FAERS Safety Report 6788338-4 (Version None)
Quarter: 2010Q2

REPORT INFORMATION
  Report Type: 
  Country: None (occurrence: None)
  Receive Date: 20100623
  Receipt Date: 20080708
  Transmission Date: 20101027
  Serious: No
  Sender: FDA-Public Use
  Company Number: US-PFIZER INC-2008007564

PATIENT
  Sex: Female
  Weight: 92.99 kg

DRUGS (2)
  1. XALATAN [Suspect]
     Indication: GLAUCOMA
     Route: 047
     Dates: start: 20071101
  2. TENORMIN [Concomitant]
     Indication: HYPERTENSION

REACTIONS (3)
  - INCORRECT DOSE ADMINISTERED [None]
  - PALPITATIONS [None]
  - PRODUCT QUALITY ISSUE [None]
